FAERS Safety Report 6358430-7 (Version None)
Quarter: 2009Q3

REPORT INFORMATION
  Report Type: 
  Country: None (occurrence: None)
  Receive Date: 20090916
  Receipt Date: 20090910
  Transmission Date: 20100115
  Serious: Yes (Hospitalization)
  Sender: FDA-Public Use
  Company Number: US-BAYER-200914071BCC

PATIENT
  Age: 82 Year
  Sex: Male
  Weight: 81 kg

DRUGS (5)
  1. ASPIRIN [Suspect]
     Indication: PAIN
     Route: 048
     Dates: end: 20090331
  2. BLINDED VACCINE TRIAL MED INJECTION [Suspect]
     Indication: PROPHYLAXIS
     Route: 030
     Dates: start: 20081020, end: 20081020
  3. PREDNISONE [Concomitant]
     Dates: start: 20080916
  4. OMEPRAZOLE [Concomitant]
     Indication: PEPTIC ULCER
     Route: 048
  5. PROBENECID [Concomitant]
     Indication: HYPERURICAEMIA
     Route: 048

REACTIONS (6)
  - ABDOMINAL PAIN [None]
  - FAECES DISCOLOURED [None]
  - GASTROINTESTINAL HAEMORRHAGE [None]
  - HAEMATOCHEZIA [None]
  - HAEMORRHAGIC ANAEMIA [None]
  - MALAISE [None]
